FAERS Safety Report 17794051 (Version 1)
Quarter: 2020Q2

REPORT INFORMATION
  Report Type: Spontaneous
  Country: FR (occurrence: FR)
  Receive Date: 20200515
  Receipt Date: 20200515
  Transmission Date: 20200714
  Serious: Yes (Other)
  Sender: FDA-Public Use
  Company Number: FR-CELGENEUS-FRA-20200503540

PATIENT
  Age: 58 Year
  Sex: Female

DRUGS (1)
  1. REVLIMID [Suspect]
     Active Substance: LENALIDOMIDE
     Indication: PLASMA CELL MYELOMA
     Route: 048
     Dates: start: 20200109, end: 20200130

REACTIONS (3)
  - Anxiety [Recovered/Resolved]
  - Confusional state [Recovered/Resolved]
  - Phobia [Recovered/Resolved]

NARRATIVE: CASE EVENT DATE: 202001
